FAERS Safety Report 8853269 (Version 1)
Quarter: 2012Q4

REPORT INFORMATION
  Report Type: 
  Country: BG (occurrence: BG)
  Receive Date: 20121022
  Receipt Date: 20121022
  Transmission Date: 20130627
  Serious: Yes (Other)
  Sender: FDA-Public Use
  Company Number: BG-ROCHE-1112825

PATIENT

DRUGS (1)
  1. ORLISTAT [Suspect]
     Indication: OBESITY
     Route: 048

REACTIONS (1)
  - Haemorrhoids [Unknown]
